FAERS Safety Report 9189995 (Version 1)
Quarter: 2013Q1

REPORT INFORMATION
  Report Type: Spontaneous
  Country: US (occurrence: None)
  Receive Date: 20130322
  Receipt Date: 20130322
  Transmission Date: 20140127
  Serious: Yes (Other)
  Sender: FDA-Public Use
  Company Number: None

PATIENT
  Age: 41 Year
  Sex: Female
  Weight: 102.06 kg

DRUGS (1)
  1. IRON DEXTRAN [Suspect]
     Indication: IRON DEFICIENCY
     Dosage: IV DRIP
     Dates: start: 20130222, end: 20130222

REACTIONS (8)
  - Abdominal pain [None]
  - Diarrhoea [None]
  - Pruritus [None]
  - Rash [None]
  - Skin discolouration [None]
  - Skin induration [None]
  - Skin exfoliation [None]
  - Infusion related reaction [None]
